FAERS Safety Report 13212127 (Version 2)
Quarter: 2019Q1

REPORT INFORMATION
  Report Type: Spontaneous
  Country: US (occurrence: US)
  Receive Date: 20170210
  Receipt Date: 20190329
  Transmission Date: 20190417
  Serious: Yes (Other)
  Sender: FDA-Public Use
  Company Number: US-BAYER-2017-021320

PATIENT
  Age: 55 Year
  Sex: Male

DRUGS (1)
  1. CIPRO [Suspect]
     Active Substance: CIPROFLOXACIN HYDROCHLORIDE
     Indication: GASTROENTERITIS
     Dosage: 500 MG, BID
     Route: 048

REACTIONS (4)
  - Joint dislocation [Unknown]
  - Ligament injury [Recovered/Resolved with Sequelae]
  - Post-traumatic pain [Recovered/Resolved]
  - Ligament rupture [Recovered/Resolved]
